FAERS Safety Report 15982582 (Version 1)
Quarter: 2019Q1

REPORT INFORMATION
  Report Type: Report from Study
  Country: US (occurrence: US)
  Receive Date: 20190219
  Receipt Date: 20190219
  Transmission Date: 20190418
  Serious: Yes (Hospitalization)
  Sender: FDA-Public Use
  Company Number: US-ENDO PHARMACEUTICALS INC-2019-101315

PATIENT
  Age: 16 Year
  Sex: Male
  Weight: 63.95 kg

DRUGS (12)
  1. CRIZOTINIB [Suspect]
     Active Substance: CRIZOTINIB
     Indication: ANAPLASTIC LARGE-CELL LYMPHOMA
     Dosage: 165 MG/M2, BID ON DAYS 1-21 (TOTAL DOSE ADMINISTERED THIS COURSE 5250MG)
     Route: 048
     Dates: start: 20181203
  2. METHOTREXATE SODIUM. [Suspect]
     Active Substance: METHOTREXATE SODIUM
     Dosage: 7.5-12 MG, ON DAY 1 (AGE BASED DOSING), PROPHASE REGIMEN 2, UNKNOWN
     Route: 037
  3. IFOSFAMIDE. [Suspect]
     Active Substance: IFOSFAMIDE
     Indication: ANAPLASTIC LARGE-CELL LYMPHOMA
     Dosage: 800 MG/M2, OVER 60 MIN ON DAYS 1-5, UNKNOWN (TOTAL DOSE ADMINISTERED THIS COURSE 7320MG)
     Route: 042
     Dates: start: 20181203, end: 20181207
  4. DOXORUBICIN HYDROCHLORIDE. [Concomitant]
     Active Substance: DOXORUBICIN HYDROCHLORIDE
     Indication: PRODUCT USED FOR UNKNOWN INDICATION
     Dosage: 25 MG/M2, OVER 1-15 MIN ON DAYS 4 AND 5, UNKNOWN
     Route: 042
  5. CYTARABINE. [Suspect]
     Active Substance: CYTARABINE
     Indication: ANAPLASTIC LARGE-CELL LYMPHOMA
     Dosage: 150 MG/M2, OVER 1-30 MINUTES Q12 HRS ON DAYS 4, UNKNOWN (TOTAL DOSE ADMINISTERED THIS COURSE 1100MG)
     Route: 042
     Dates: start: 20181206, end: 20181207
  6. ETOPOSIDE. [Suspect]
     Active Substance: ETOPOSIDE
     Indication: ANAPLASTIC LARGE-CELL LYMPHOMA
     Dosage: 100 MG/M2, OVER 2 HOURS ON DAYS 4 AND 5, UNKNOWN (TOTAL DOSE ADMINISTERED THIS COURSE 366MG)
     Route: 042
     Dates: start: 20181206, end: 20181207
  7. DEXAMETHASONE. [Suspect]
     Active Substance: DEXAMETHASONE
     Indication: ANAPLASTIC LARGE-CELL LYMPHOMA
     Dosage: 5 MG/M2, BID ON DAYS 3-5 (TOTAL DOSE ADMINISTERED THIS COURSE 92.5MG)
     Route: 048
     Dates: start: 20181203, end: 20181207
  8. DEXAMETHASONE. [Suspect]
     Active Substance: DEXAMETHASONE
     Dosage: 5 MG/M2, OD ON DAYS 1-2, PROPHASE
     Route: 048
  9. CYTARABINE. [Suspect]
     Active Substance: CYTARABINE
     Dosage: 15-24 MG, ON DAY 1 (AGE BASED DOSING),PROPHASE, UNKNOWN
     Route: 037
     Dates: start: 20181206, end: 20181207
  10. METHOTREXATE SODIUM. [Suspect]
     Active Substance: METHOTREXATE SODIUM
     Indication: ANAPLASTIC LARGE-CELL LYMPHOMA
     Dosage: 3000 MG/M2, OVER 3 HOURS ON DAY 1, UNKNOWN (TOTAL DOSE ADMINISTERED THIS COURSE 5490MG)
     Route: 042
     Dates: start: 20181203, end: 20181203
  11. HYDROCORTISONE. [Concomitant]
     Active Substance: HYDROCORTISONE
     Indication: PRODUCT USED FOR UNKNOWN INDICATION
     Dosage: 7.5-12 MG, ON DAY 1 (AGE BASED DOSING), UNKNOWN
     Route: 037
  12. CYCLOPHOSPHAMIDE. [Concomitant]
     Active Substance: CYCLOPHOSPHAMIDE
     Indication: PRODUCT USED FOR UNKNOWN INDICATION
     Dosage: 200 MG/M2, OVER 15-30 MINUTES ON DAYS 1 AND 2 AND 1-5, UNKNOWN
     Route: 042

REACTIONS (4)
  - Off label use [Unknown]
  - Stomatitis [Recovered/Resolved with Sequelae]
  - Decreased appetite [Recovered/Resolved with Sequelae]
  - Oral pain [Recovered/Resolved with Sequelae]

NARRATIVE: CASE EVENT DATE: 20181213
